FAERS Safety Report 23285084 (Version 1)
Quarter: 2023Q4

REPORT INFORMATION
  Report Type: Spontaneous
  Country: HR (occurrence: HR)
  Receive Date: 20231211
  Receipt Date: 20231211
  Transmission Date: 20240110
  Serious: Yes (Hospitalization, Other)
  Sender: FDA-Public Use
  Company Number: HR-BAYER-2023A177134

PATIENT
  Age: 76 Year
  Sex: Male

DRUGS (14)
  1. XARELTO [Suspect]
     Active Substance: RIVAROXABAN
     Indication: Atrial fibrillation
     Dosage: 20 MG
     Route: 048
  2. BISOPROLOL [Concomitant]
     Active Substance: BISOPROLOL\BISOPROLOL FUMARATE
     Dosage: 5 MG
  3. PERINDOPRIL [Concomitant]
     Active Substance: PERINDOPRIL
     Dosage: 5 MG
  4. AMLODIPINE [Concomitant]
     Active Substance: AMLODIPINE BESYLATE
     Dosage: 5 MG
  5. AMIODARONE [Concomitant]
     Active Substance: AMIODARONE
  6. METHIMAZOLE [Concomitant]
     Active Substance: METHIMAZOLE
  7. PREDNISONE [Concomitant]
     Active Substance: PREDNISONE
  8. FUROSEMIDE [Concomitant]
     Active Substance: FUROSEMIDE
  9. EPLERENONE [Concomitant]
     Active Substance: EPLERENONE
  10. PANTOPRAZOLE [Concomitant]
     Active Substance: PANTOPRAZOLE
  11. ATORVASTATIN [Concomitant]
     Active Substance: ATORVASTATIN
  12. DAPAGLIFLOZIN [Concomitant]
     Active Substance: DAPAGLIFLOZIN
  13. FLUCLOXACILLIN [Concomitant]
     Active Substance: FLUCLOXACILLIN
  14. LACTOCOCCUS LACTIS [Concomitant]

REACTIONS (8)
  - Cardiac failure [Unknown]
  - Prostate cancer [Unknown]
  - Coronary artery stenosis [Unknown]
  - Cardiac failure acute [Unknown]
  - Hospitalisation [Unknown]
  - Sinus rhythm [Unknown]
  - Tooth extraction [Unknown]
  - Pyrexia [Unknown]

NARRATIVE: CASE EVENT DATE: 20190101
